FAERS Safety Report 18441674 (Version 22)
Quarter: 2022Q1

REPORT INFORMATION
  Report Type: Report from Study
  Country: CA (occurrence: CA)
  Receive Date: 20201029
  Receipt Date: 20220206
  Transmission Date: 20220424
  Serious: Yes (Other)
  Sender: FDA-Public Use
  Company Number: PHHY2017CA052385

PATIENT
  Age: 30 Year
  Sex: Male

DRUGS (11)
  1. SANDOSTATIN LAR DEPOT [Suspect]
     Active Substance: OCTREOTIDE ACETATE
     Indication: Acromegaly
     Dosage: 20 MG, QMO
     Route: 030
     Dates: start: 20170404
  2. SANDOSTATIN LAR DEPOT [Suspect]
     Active Substance: OCTREOTIDE ACETATE
     Dosage: 30 MG, Q3W
     Route: 030
     Dates: start: 20170404
  3. SANDOSTATIN LAR DEPOT [Suspect]
     Active Substance: OCTREOTIDE ACETATE
     Dosage: 30 MG, QMO
     Route: 030
     Dates: start: 20170627
  4. SANDOSTATIN LAR DEPOT [Suspect]
     Active Substance: OCTREOTIDE ACETATE
     Dosage: 30 MG, Q3W
     Route: 030
  5. SANDOSTATIN LAR DEPOT [Suspect]
     Active Substance: OCTREOTIDE ACETATE
     Dosage: 30 MG, Q3W
     Route: 030
     Dates: start: 20200414
  6. SANDOSTATIN LAR DEPOT [Suspect]
     Active Substance: OCTREOTIDE ACETATE
     Dosage: 30 MG, Q3W
     Route: 030
  7. ATENOLOL [Suspect]
     Active Substance: ATENOLOL
     Indication: Product used for unknown indication
     Dosage: UNK UNK, BID (VS 36-80-18) (STARTED IN 2021)
     Route: 065
     Dates: start: 2021
  8. INDAPAMIDE [Suspect]
     Active Substance: INDAPAMIDE
     Indication: Product used for unknown indication
     Dosage: 2.5 MG, QD
     Route: 065
     Dates: start: 20220123
  9. AMLODIPINE [Concomitant]
     Active Substance: AMLODIPINE BESYLATE
     Indication: Hypertension
     Dosage: 7.5 MG
     Route: 065
  10. PEGVISOMANT [Concomitant]
     Active Substance: PEGVISOMANT
     Indication: Product used for unknown indication
     Dosage: UNK, QD
     Route: 058
  11. CHLORTHALIDONE [Concomitant]
     Active Substance: CHLORTHALIDONE
     Indication: Hypertension
     Dosage: 50 MG, QD
     Route: 065
     Dates: start: 20210617

REACTIONS (23)
  - Hypertrophic cardiomyopathy [Unknown]
  - Blood pressure increased [Unknown]
  - Ear pain [Unknown]
  - Emotional disorder [Unknown]
  - Arthralgia [Unknown]
  - Anxiety [Unknown]
  - Depression [Unknown]
  - Body temperature decreased [Unknown]
  - Influenza [Recovered/Resolved]
  - Hyperhidrosis [Unknown]
  - Cortisol increased [Unknown]
  - Stress [Unknown]
  - Vomiting [Unknown]
  - Blood growth hormone increased [Unknown]
  - Heart rate increased [Unknown]
  - Memory impairment [Recovering/Resolving]
  - Headache [Unknown]
  - Faeces discoloured [Unknown]
  - Fatigue [Unknown]
  - Injection site mass [Recovered/Resolved]
  - Injection site mass [Unknown]
  - Inappropriate schedule of product administration [Unknown]
  - Needle issue [Unknown]

NARRATIVE: CASE EVENT DATE: 20170404
